FAERS Safety Report 4289518-2 (Version None)
Quarter: 2004Q1

REPORT INFORMATION
  Report Type: 
  Country: None (occurrence: None)
  Receive Date: 20040113
  Receipt Date: 20030318
  Transmission Date: 20041129
  Serious: Yes (Other)
  Sender: FDA-Public Use
  Company Number: 2003012032

PATIENT

DRUGS (5)
  1. DIFLUCAN [Suspect]
     Indication: CRYPTOCOCCOSIS
     Dosage: 200 MG (DAILY)
     Dates: start: 20021226
  2. ZOLOFT [Suspect]
     Indication: ILL-DEFINED DISORDER
     Dosage: 50 MG (DAILY)
     Dates: start: 20030317
  3. METOPROLOL TARTRATE [Concomitant]
  4. DOCUSATE SODIUM (DOCUSATE SODIUM) [Concomitant]
  5. CLOPIDOGREL BISULFATE [Concomitant]

REACTIONS (3)
  - ALANINE AMINOTRANSFERASE INCREASED [None]
  - ASPARTATE AMINOTRANSFERASE INCREASED [None]
  - THROMBOCYTOPENIA [None]
